FAERS Safety Report 14558856 (Version 2)
Quarter: 2018Q1

REPORT INFORMATION
  Report Type: Spontaneous
  Country: US (occurrence: US)
  Receive Date: 20180221
  Receipt Date: 20180309
  Transmission Date: 20180509
  Serious: No
  Sender: FDA-Public Use
  Company Number: US-PFIZER INC-2018071057

PATIENT
  Age: 74 Year
  Sex: Female
  Weight: 83.1 kg

DRUGS (1)
  1. ADVIL [Suspect]
     Active Substance: IBUPROFEN
     Indication: CEREBROVASCULAR ACCIDENT
     Dosage: 200 MG, DAILY (ONE AT NIGHT)
     Route: 048

REACTIONS (3)
  - Blood glucose increased [Recovered/Resolved]
  - Product coating issue [Recovered/Resolved]
  - Intentional product misuse [Recovered/Resolved]
